FAERS Safety Report 8838162 (Version 1)
Quarter: 2012Q4

REPORT INFORMATION
  Report Type: 
  Country: US (occurrence: US)
  Receive Date: 20121012
  Receipt Date: 20121012
  Transmission Date: 20130627
  Serious: No
  Sender: FDA-Public Use
  Company Number: US-ROCHE-GNE215833

PATIENT
  Sex: Female

DRUGS (1)
  1. NUTROPIN AQ [Suspect]
     Indication: TURNER^S SYNDROME
     Dosage: 1.9 mg, qd
     Route: 058
     Dates: start: 20040828

REACTIONS (3)
  - Injection site discomfort [Recovered/Resolved]
  - Drug ineffective [Unknown]
  - Injection site pain [Unknown]
